FAERS Safety Report 6250523-8 (Version None)
Quarter: 2009Q2

REPORT INFORMATION
  Report Type: 
  Country: None (occurrence: None)
  Receive Date: 20090630
  Receipt Date: 20090624
  Transmission Date: 20091009
  Serious: Yes (Other)
  Sender: FDA-Public Use
  Company Number: ES-ROCHE-640147

PATIENT
  Age: 43 Year
  Sex: Female

DRUGS (1)
  1. PEGASYS [Suspect]
     Route: 065
     Dates: start: 20080929, end: 20090126

REACTIONS (1)
  - DEMYELINATING POLYNEUROPATHY [None]
